FAERS Safety Report 19372545 (Version 1)
Quarter: 2021Q2

REPORT INFORMATION
  Report Type: Spontaneous
  Country: GB (occurrence: GB)
  Receive Date: 20210604
  Receipt Date: 20210604
  Transmission Date: 20210717
  Serious: Yes (Hospitalization)
  Sender: FDA-Public Use
  Company Number: GB-TEVA-2021-GB-1918202

PATIENT

DRUGS (13)
  1. CARBOCISTEINE [Concomitant]
     Active Substance: CARBOCYSTEINE
     Dosage: 1500 MILLIGRAM DAILY; 750MG
     Route: 048
  2. RAMIPRIL. [Concomitant]
     Active Substance: RAMIPRIL
     Dosage: 1.25 MILLIGRAM DAILY;
     Route: 048
  3. SYMBICORT [Concomitant]
     Active Substance: BUDESONIDE\FORMOTEROL FUMARATE DIHYDRATE
     Dosage: 4 DOSAGE FORMS DAILY; UNIT DOSE : 2 DOSAGE FORMS , 200/6 TURBOHALER (ASTRAZENECA UK LTD)
  4. CLOPIDOGREL [Suspect]
     Active Substance: CLOPIDOGREL BISULFATE
     Dosage: 75 MILLIGRAM DAILY;
     Route: 048
  5. HYDROXOCOBALAMIN [Concomitant]
     Active Substance: HYDROXOCOBALAMIN
     Dosage: 1MG EVERY 3 MONTHS
  6. LANSOPRAZOLE. [Concomitant]
     Active Substance: LANSOPRAZOLE
     Dosage: 30 MILLIGRAM DAILY; STRENGTH : 30 MG
     Route: 048
  7. MEMANTINE. [Concomitant]
     Active Substance: MEMANTINE
     Dosage: STRENGTH : 20 MG
     Route: 048
  8. ZOMORPH [Concomitant]
     Active Substance: MORPHINE SULFATE
     Dosage: 120 MILLIGRAM DAILY; UNIT DOSE : 60MG, MODIFIED?RELEASE CAPSULES , STRENGTH : 60 MG ,(PROSTRAKAN LTD
     Route: 048
  9. AMITRIPTYLINE [Concomitant]
     Active Substance: AMITRIPTYLINE
     Dosage: 50 MILLIGRAM DAILY; ON
     Route: 048
  10. PREDNISOLONE. [Suspect]
     Active Substance: PREDNISOLONE
     Dosage: 30 MILLIGRAM DAILY; 30MG OM
     Route: 048
  11. BISOPROLOL [Concomitant]
     Active Substance: BISOPROLOL
     Dosage: 2.5 MILLIGRAM DAILY;
  12. EZETIMIBE. [Concomitant]
     Active Substance: EZETIMIBE
     Dosage: STRENGTH : 10 MG
     Route: 048
  13. TIOTROPIUM [Concomitant]
     Active Substance: TIOTROPIUM
     Dosage: STRENGTH : 18 MCG, INHALATION POWDER CAPSULES WITH DEVICE

REACTIONS (2)
  - Gastritis [Recovered/Resolved]
  - Haematemesis [Recovered/Resolved]

NARRATIVE: CASE EVENT DATE: 20210511
